FAERS Safety Report 20071525 (Version 1)
Quarter: 2021Q4

REPORT INFORMATION
  Report Type: Report from Study
  Country: US (occurrence: US)
  Receive Date: 20211115
  Receipt Date: 20211115
  Transmission Date: 20220303
  Serious: Yes (Hospitalization, Other)
  Sender: FDA-Public Use
  Company Number: US-VALIDUS PHARMACEUTICALS LLC-US-VDP-2021-014518

PATIENT

DRUGS (17)
  1. BUMEX [Suspect]
     Active Substance: BUMETANIDE
     Indication: Product used for unknown indication
     Dosage: UNK
     Route: 065
     Dates: end: 202110
  2. BUMEX [Suspect]
     Active Substance: BUMETANIDE
     Dosage: UNK
     Route: 065
     Dates: start: 202110
  3. KORLYM [Suspect]
     Active Substance: MIFEPRISTONE
     Indication: Cushing^s syndrome
     Dosage: 300 MG, QD
     Route: 048
     Dates: start: 20210430, end: 20210531
  4. KORLYM [Suspect]
     Active Substance: MIFEPRISTONE
     Dosage: 600 MG, QD
     Route: 065
     Dates: start: 20210601, end: 202110
  5. KORLYM [Suspect]
     Active Substance: MIFEPRISTONE
     Dosage: 600 MG, QD
     Route: 065
     Dates: start: 202110
  6. JARDIANCE [Suspect]
     Active Substance: EMPAGLIFLOZIN
     Indication: Product used for unknown indication
     Dosage: UNK
     Route: 065
     Dates: end: 202110
  7. POTASSIUM CHLORIDE [Suspect]
     Active Substance: POTASSIUM CHLORIDE
     Indication: Product used for unknown indication
     Dosage: UNK
     Route: 065
     Dates: end: 202110
  8. DIAZEPAM [Concomitant]
     Active Substance: DIAZEPAM
     Indication: Product used for unknown indication
     Dosage: UNK
     Route: 065
  9. DICLOFENAC [Concomitant]
     Active Substance: DICLOFENAC
     Indication: Product used for unknown indication
     Dosage: UNK
     Route: 065
  10. ESCITALOPRAM [Concomitant]
     Active Substance: ESCITALOPRAM OXALATE
     Indication: Product used for unknown indication
     Dosage: UNK
     Route: 065
  11. FISH OIL [Concomitant]
     Active Substance: FISH OIL
     Indication: Product used for unknown indication
     Dosage: UNK
     Route: 065
  12. HYDRALAZINE [Concomitant]
     Active Substance: HYDRALAZINE HYDROCHLORIDE
     Indication: Product used for unknown indication
     Dosage: UNK
     Route: 065
  13. METOPROLOL [Concomitant]
     Active Substance: METOPROLOL
     Indication: Product used for unknown indication
     Dosage: UNK
     Route: 065
  14. INSULIN HUMAN [Concomitant]
     Active Substance: INSULIN HUMAN
     Indication: Product used for unknown indication
     Dosage: UNK
     Route: 065
  15. OMEPRAZOLE [Concomitant]
     Active Substance: OMEPRAZOLE
     Indication: Product used for unknown indication
     Dosage: UNK
     Route: 065
  16. VIENVA TM [Concomitant]
     Active Substance: ETHINYL ESTRADIOL\LEVONORGESTREL
     Indication: Product used for unknown indication
     Dosage: UNK
     Route: 065
  17. LASIX [Concomitant]
     Active Substance: FUROSEMIDE
     Indication: Product used for unknown indication
     Dosage: UNK
     Route: 065

REACTIONS (4)
  - Hypervolaemia [Unknown]
  - Blood creatinine increased [Recovering/Resolving]
  - Blood potassium increased [Recovered/Resolved]
  - Cardiac failure congestive [Recovered/Resolved]

NARRATIVE: CASE EVENT DATE: 20211010
